FAERS Safety Report 22097999 (Version 7)
Quarter: 2023Q4

REPORT INFORMATION
  Report Type: Report from Study
  Country: AR (occurrence: AR)
  Receive Date: 20230315
  Receipt Date: 20231116
  Transmission Date: 20240110
  Serious: Yes (Hospitalization)
  Sender: FDA-Public Use
  Company Number: AR-ELI_LILLY_AND_COMPANY-AR202301008497

PATIENT
  Age: 71 Year
  Sex: Male
  Weight: 105.5 kg

DRUGS (13)
  1. TIRZEPATIDE [Suspect]
     Active Substance: TIRZEPATIDE
     Indication: Type 2 diabetes mellitus
     Dosage: UNK, WEEKLY (1/W)
     Route: 058
     Dates: start: 20210210, end: 20230112
  2. LOSARTAN [Concomitant]
     Active Substance: LOSARTAN
     Indication: Product used for unknown indication
     Dosage: 100 MG, DAILY
     Route: 048
     Dates: start: 200808
  3. AMLODIPINE [Concomitant]
     Active Substance: AMLODIPINE BESYLATE
     Indication: Product used for unknown indication
     Dosage: 5 MG, DAILY
     Route: 048
     Dates: start: 200808
  4. BISOPROLOL [Concomitant]
     Active Substance: BISOPROLOL\BISOPROLOL FUMARATE
     Indication: Product used for unknown indication
     Dosage: 10 MG, DAILY
     Route: 048
     Dates: start: 200808
  5. ASPIRIN [Concomitant]
     Active Substance: ASPIRIN
     Indication: Product used for unknown indication
     Dosage: 100 MG, DAILY
     Route: 048
     Dates: start: 200908
  6. ROSUVASTATIN [Concomitant]
     Active Substance: ROSUVASTATIN
     Indication: Product used for unknown indication
     Dosage: 10 MG, DAILY
     Route: 048
     Dates: start: 200908
  7. ALPRAZOLAM [Concomitant]
     Active Substance: ALPRAZOLAM
     Indication: Product used for unknown indication
     Dosage: UNK, UNKNOWN
     Route: 048
     Dates: start: 199510
  8. PIOGLITAZONE [Concomitant]
     Active Substance: PIOGLITAZONE
     Indication: Type 2 diabetes mellitus
     Dosage: 45 MG, DAILY
     Route: 048
     Dates: start: 20201130
  9. AMOXICILLIN [Concomitant]
     Active Substance: AMOXICILLIN
     Indication: Prophylaxis
     Dosage: UNK, UNKNOWN
     Route: 048
     Dates: start: 20210428
  10. DULCOLAX (BISACODYL) [Concomitant]
     Active Substance: BISACODYL
     Indication: Constipation
     Dosage: UNK, UNKNOWN
     Route: 048
     Dates: start: 20211222
  11. NPH INSULIN [Concomitant]
     Active Substance: INSULIN BEEF
     Indication: Type 2 diabetes mellitus
     Dosage: 78 INTERNATIONAL UNIT, DAILY
     Route: 058
     Dates: start: 20220416
  12. NPH INSULIN [Concomitant]
     Active Substance: INSULIN BEEF
     Dosage: UNK, UNKNOWN
     Route: 065
     Dates: start: 201007
  13. INSULIN ASPART [Concomitant]
     Active Substance: INSULIN ASPART
     Indication: Type 2 diabetes mellitus
     Dosage: 1 U, DAILY
     Route: 058
     Dates: start: 20210210

REACTIONS (1)
  - Hepatitis [Recovered/Resolved]

NARRATIVE: CASE EVENT DATE: 20230113
